FAERS Safety Report 5221501-2 (Version None)
Quarter: 2007Q1

REPORT INFORMATION
  Report Type: 
  Country: None (occurrence: None)
  Receive Date: 20070126
  Receipt Date: 20070117
  Transmission Date: 20070707
  Serious: Yes (Hospitalization)
  Sender: FDA-Public Use
  Company Number: AU-PFIZER INC-2007005175

PATIENT
  Sex: Female

DRUGS (3)
  1. ZOLOFT [Suspect]
  2. PERINDOPRIL ERBUMINE [Concomitant]
  3. NEULACTIL [Concomitant]

REACTIONS (9)
  - ANOREXIA [None]
  - DIARRHOEA [None]
  - DYSPEPSIA [None]
  - INSOMNIA [None]
  - NAUSEA [None]
  - OLIGODIPSIA [None]
  - PALPITATIONS [None]
  - TREMOR [None]
  - YAWNING [None]
